FAERS Safety Report 7419610-2 (Version None)
Quarter: 2011Q2

REPORT INFORMATION
  Report Type: 
  Country: None (occurrence: None)
  Receive Date: 20110412
  Receipt Date: 20110412
  Transmission Date: 20111010
  Serious: Yes (Other)
  Sender: FDA-Public Use
  Company Number: None

PATIENT
  Age: 11 Year
  Sex: Male
  Weight: 31.7518 kg

DRUGS (1)
  1. METADATE CD [Suspect]
     Indication: ATTENTION DEFICIT/HYPERACTIVITY DISORDER
     Dosage: 30MG DAILY PO
     Route: 048
     Dates: start: 20101001, end: 20110401

REACTIONS (1)
  - TIC [None]
